FAERS Safety Report 8162795-3 (Version None)
Quarter: 2012Q1

REPORT INFORMATION
  Report Type: 
  Country: None (occurrence: None)
  Receive Date: 20120224
  Receipt Date: 20120222
  Transmission Date: 20120608
  Serious: Yes (Hospitalization, Other)
  Sender: FDA-Public Use
  Company Number: SE-PFIZER INC-2012040398

PATIENT
  Age: 81 Year
  Sex: Female

DRUGS (14)
  1. ENALAPRIL [Concomitant]
     Dosage: UNK
  2. METFORMIN [Concomitant]
     Dosage: UNK
  3. NOVOMIX [Concomitant]
     Dosage: 30, FLEXPEN
  4. MORPHINE SULFATE [Suspect]
     Indication: BACK PAIN
     Dosage: 40 MG, UNK
     Route: 048
     Dates: start: 20070101, end: 20110401
  5. LYRICA [Concomitant]
     Dosage: UNK
  6. FOLIC ACID [Concomitant]
     Dosage: UNK
  7. ACETAMINOPHEN [Concomitant]
     Dosage: UNK
  8. EMGESAN [Concomitant]
     Dosage: 250 MG, UNK
  9. MORPHINE SULFATE [Suspect]
     Indication: NEURALGIA
  10. POTASSIUM CHLORIDE [Concomitant]
     Dosage: UNK
  11. ASPIRIN [Concomitant]
     Dosage: 75 MG, UNK
  12. HYDROXOCOBALAMIN [Concomitant]
     Dosage: UNK
  13. FUROSEMIDE [Concomitant]
     Dosage: UNK
  14. SIMVASTATIN [Concomitant]
     Dosage: UNK

REACTIONS (3)
  - MYOCLONUS [None]
  - ANKLE FRACTURE [None]
  - FALL [None]
